FAERS Safety Report 16490457 (Version 1)
Quarter: 2019Q2

REPORT INFORMATION
  Report Type: Spontaneous
  Country: CA (occurrence: CA)
  Receive Date: 20190628
  Receipt Date: 20190628
  Transmission Date: 20190711
  Serious: Yes (Disabling)
  Sender: FDA-Public Use
  Company Number: CA-AUROBINDO-AUR-APL-2019-035651

PATIENT

DRUGS (3)
  1. HUMIRA [Suspect]
     Active Substance: ADALIMUMAB
     Indication: ANKYLOSING SPONDYLITIS
     Dosage: 40 MILLIGRAM, ONCE IN 2 WEEKS
     Route: 058
  2. DULOXETINE. [Suspect]
     Active Substance: DULOXETINE
     Indication: PAIN
  3. DULOXETINE. [Suspect]
     Active Substance: DULOXETINE
     Indication: STRESS
     Dosage: UNK
     Route: 048

REACTIONS (5)
  - Back pain [Not Recovered/Not Resolved]
  - Self-injurious ideation [Not Recovered/Not Resolved]
  - Therapeutic response shortened [Not Recovered/Not Resolved]
  - Stress [Not Recovered/Not Resolved]
  - Feeling abnormal [Not Recovered/Not Resolved]
